FAERS Safety Report 5166552-1 (Version None)
Quarter: 2006Q4

REPORT INFORMATION
  Report Type: 
  Country: None (occurrence: None)
  Receive Date: 20061130
  Receipt Date: 20061130
  Transmission Date: 20070319
  Serious: Yes (Hospitalization, Other)
  Sender: FDA-Public Use
  Company Number: None

PATIENT
  Age: 74 Year
  Sex: Male

DRUGS (9)
  1. ENOXAPARIN SODIUM [Suspect]
     Indication: ATRIAL FIBRILLATION
     Dosage: 50 MG BID SQ
     Route: 058
     Dates: start: 20040118, end: 20040121
  2. ALBUTEROL [Concomitant]
  3. ATROVENT [Concomitant]
  4. PREDNISONE TAB [Concomitant]
  5. THEOPHYLLINE [Concomitant]
  6. HUMIBID [Concomitant]
  7. LANOXIN [Concomitant]
  8. PREVACID [Concomitant]
  9. LEVAQUIN [Concomitant]

REACTIONS (1)
  - GASTROINTESTINAL HAEMORRHAGE [None]
